FAERS Safety Report 21376399 (Version 4)
Quarter: 2022Q4

REPORT INFORMATION
  Report Type: Spontaneous
  Country: US (occurrence: US)
  Receive Date: 20220926
  Receipt Date: 20221018
  Transmission Date: 20230113
  Serious: Yes (Hospitalization, Other)
  Sender: FDA-Public Use
  Company Number: US-PFIZER INC-202201184896

PATIENT
  Age: 81 Year
  Sex: Female
  Weight: 70.295 kg

DRUGS (1)
  1. PAXLOVID [Suspect]
     Active Substance: NIRMATRELVIR\RITONAVIR
     Indication: COVID-19 treatment
     Dosage: 10 MG, 2X/DAY (FOR 5 DAYS)
     Dates: start: 20220921, end: 20220926

REACTIONS (7)
  - Nausea [Recovered/Resolved]
  - Dysgeusia [Recovered/Resolved]
  - Taste disorder [Recovered/Resolved]
  - Mental impairment [Recovered/Resolved]
  - Diarrhoea [Recovered/Resolved]
  - General physical condition abnormal [Recovered/Resolved]
  - Feeling abnormal [Unknown]

NARRATIVE: CASE EVENT DATE: 20220101
